FAERS Safety Report 4704521-3 (Version None)
Quarter: 2005Q2

REPORT INFORMATION
  Report Type: 
  Country: None (occurrence: None)
  Receive Date: 20050629
  Receipt Date: 20050621
  Transmission Date: 20051028
  Serious: Yes (Other)
  Sender: FDA-Public Use
  Company Number: 215510

PATIENT
  Age: 43 Year
  Sex: Female
  Weight: 54 kg

DRUGS (9)
  1. RITUXAN [Suspect]
     Indication: NON-HODGKIN'S LYMPHOMA
     Dosage: 660 MG, INTRAVENOUS
     Route: 042
     Dates: start: 20020215, end: 20020308
  2. CYCLOPHOSPHAMIDE [Suspect]
     Indication: NON-HODGKIN'S LYMPHOMA
     Dosage: 1100 MG, INTRAVENOUS
     Route: 042
     Dates: start: 20020215, end: 20020217
  3. FLUDARA [Suspect]
     Indication: NON-HODGKIN'S LYMPHOMA
     Dosage: 45 MG, INTRAVENOUS
     Route: 042
     Dates: start: 20020215, end: 20020217
  4. POLARAMINE [Concomitant]
  5. ACETAMINOPHEN [Concomitant]
  6. METHOTREXATE [Concomitant]
  7. PERIPHERAL BLOOD STEM CELL (STEM CELLS) [Concomitant]
  8. PACKED RED BLOOD CELL TRANSFUSION (BLOOD CELLS, RED) [Concomitant]
  9. PLATELETS [Concomitant]

REACTIONS (1)
  - WHITE BLOOD CELL COUNT DECREASED [None]
